FAERS Safety Report 22534903 (Version 3)
Quarter: 2023Q2

REPORT INFORMATION
  Report Type: Spontaneous
  Country: US (occurrence: US)
  Receive Date: 20230608
  Receipt Date: 20230620
  Transmission Date: 20230721
  Serious: Yes (Hospitalization)
  Sender: FDA-Public Use
  Company Number: US-AUROBINDO-AUR-APL-2023-039376

PATIENT
  Age: 57 Year
  Sex: Female

DRUGS (1)
  1. CLOZAPINE [Suspect]
     Active Substance: CLOZAPINE
     Indication: Product used for unknown indication
     Dosage: 25MG IN THE MORNING AND 175MG TABLET AT BEDTIME
     Route: 048

REACTIONS (5)
  - Mental disorder [Unknown]
  - Parkinson^s disease [Unknown]
  - Treatment noncompliance [Unknown]
  - Hospitalisation [Unknown]
  - Refusal of treatment by patient [Unknown]
